FAERS Safety Report 4469307-6 (Version None)
Quarter: 2004Q4

REPORT INFORMATION
  Report Type: 
  Country: None (occurrence: None)
  Receive Date: 20041008
  Receipt Date: 20031016
  Transmission Date: 20050328
  Serious: Yes (Other)
  Sender: FDA-Public Use
  Company Number: US-BRISTOL-MYERS SQUIBB COMPANY-12417143

PATIENT
  Sex: Female

DRUGS (3)
  1. AVAPRO [Suspect]
     Route: 048
     Dates: start: 20030101
  2. ECOTRIN [Concomitant]
     Dates: start: 20030601
  3. PREDNISONE [Concomitant]

REACTIONS (4)
  - DYSPNOEA [None]
  - HAEMOGLOBIN DECREASED [None]
  - JOINT SWELLING [None]
  - NAIL DISORDER [None]
